FAERS Safety Report 25458319 (Version 1)
Quarter: 2025Q2

REPORT INFORMATION
  Report Type: Spontaneous
  Country: US (occurrence: None)
  Receive Date: 20250620
  Receipt Date: 20250620
  Transmission Date: 20250716
  Serious: No
  Sender: EMMAUS LIFE SCIENCES
  Company Number: US-Emmaus Medical, Inc.-EMM202503-000027

PATIENT
  Age: 47 Year
  Sex: Male

DRUGS (2)
  1. ENDARI [Suspect]
     Active Substance: GLUTAMINE
     Indication: Sickle cell disease
     Route: 048
     Dates: start: 20250125, end: 202502
  2. DEFERASIROX [Concomitant]
     Active Substance: DEFERASIROX
     Indication: Product used for unknown indication
     Route: 065

REACTIONS (2)
  - Diarrhoea [Recovering/Resolving]
  - Headache [Recovering/Resolving]

NARRATIVE: CASE EVENT DATE: 20250101
